FAERS Safety Report 5918020-4 (Version None)
Quarter: 2008Q4

REPORT INFORMATION
  Report Type: 
  Country: None (occurrence: None)
  Receive Date: 20081014
  Receipt Date: 20081002
  Transmission Date: 20090506
  Serious: Yes (Other)
  Sender: FDA-Public Use
  Company Number: NL-PFIZER INC-2008076807

PATIENT
  Age: 45 Year
  Sex: Male
  Weight: 85 kg

DRUGS (2)
  1. CHANTIX [Suspect]
     Indication: SMOKING CESSATION THERAPY
     Route: 048
     Dates: start: 20080905, end: 20080909
  2. XYZAL [Concomitant]
     Indication: SEASONAL ALLERGY
     Dates: start: 20080601, end: 20080906

REACTIONS (14)
  - ACTIVITIES OF DAILY LIVING IMPAIRED [None]
  - APATHY [None]
  - DIARRHOEA [None]
  - DIZZINESS [None]
  - IMPAIRED DRIVING ABILITY [None]
  - INCORRECT DOSE ADMINISTERED [None]
  - LABORATORY TEST ABNORMAL [None]
  - LIVER DISORDER [None]
  - MENTAL IMPAIRMENT [None]
  - SPEECH DISORDER [None]
  - THINKING ABNORMAL [None]
  - TINNITUS [None]
  - VISUAL ACUITY REDUCED [None]
  - VOMITING [None]
